FAERS Safety Report 15566313 (Version 1)
Quarter: 2018Q4

REPORT INFORMATION
  Report Type: Spontaneous
  Country: US (occurrence: US)
  Receive Date: 20181030
  Receipt Date: 20181030
  Transmission Date: 20190205
  Serious: No
  Sender: FDA-Public Use
  Company Number: None

PATIENT
  Age: 67 Year
  Sex: Male
  Weight: 65.25 kg

DRUGS (10)
  1. CLONAZEPAM. [Concomitant]
     Active Substance: CLONAZEPAM
  2. MIGERGOT [Concomitant]
     Active Substance: CAFFEINE\ERGOTAMINE TARTRATE
  3. VITAMIN D [Concomitant]
     Active Substance: CHOLECALCIFEROL
  4. PANTOPRAZOLE [Concomitant]
     Active Substance: PANTOPRAZOLE
  5. AMLODIPINE [Concomitant]
     Active Substance: AMLODIPINE BESYLATE
  6. AIMOVIG [Suspect]
     Active Substance: ERENUMAB-AOOE
     Dosage: ?          QUANTITY:2 INJECTION(S);OTHER FREQUENCY:ONCE PER MONTH;?
     Route: 030
     Dates: start: 20180817, end: 20180917
  7. TOPROL XL [Concomitant]
     Active Substance: METOPROLOL SUCCINATE
  8. SIMVASTATIN. [Concomitant]
     Active Substance: SIMVASTATIN
  9. LOSARTAN. [Concomitant]
     Active Substance: LOSARTAN
  10. MONTELUKAST [Concomitant]
     Active Substance: MONTELUKAST SODIUM

REACTIONS (11)
  - Migraine [None]
  - Cognitive disorder [None]
  - Disturbance in attention [None]
  - Intentional dose omission [None]
  - Drug ineffective [None]
  - Headache [None]
  - Visual impairment [None]
  - Syringe issue [None]
  - Incorrect dose administered [None]
  - Clumsiness [None]
  - Gait disturbance [None]

NARRATIVE: CASE EVENT DATE: 20180917
